FAERS Safety Report 9611957 (Version 2)
Quarter: 2013Q4

REPORT INFORMATION
  Report Type: Spontaneous
  Country: US (occurrence: US)
  Receive Date: 20131010
  Receipt Date: 20131031
  Transmission Date: 20140711
  Serious: Yes (Hospitalization)
  Sender: FDA-Public Use
  Company Number: US-PURDUE-USA-2013-0107191

PATIENT
  Age: 68 Year
  Sex: Male

DRUGS (2)
  1. BUTRANS [Suspect]
     Indication: PRODUCT USED FOR UNKNOWN INDICATION
     Dosage: 20 MCG/HR, WEEKLY
     Route: 062
     Dates: start: 20130918, end: 20130926
  2. BUTRANS [Suspect]
     Dosage: UNKNOWN
     Route: 062
     Dates: start: 20131003

REACTIONS (2)
  - Pneumonia [Recovered/Resolved]
  - Dyspnoea [Not Recovered/Not Resolved]
